FAERS Safety Report 12436353 (Version 1)
Quarter: 2016Q2

REPORT INFORMATION
  Report Type: Spontaneous
  Country: US (occurrence: US)
  Receive Date: 20160605
  Receipt Date: 20160605
  Transmission Date: 20160815
  Serious: Yes (Other)
  Sender: FDA-Public Use
  Company Number: US-009507513-1606USA000402

PATIENT
  Age: 20 Year
  Sex: Female
  Weight: 88.44 kg

DRUGS (1)
  1. NEXPLANON [Suspect]
     Active Substance: ETONOGESTREL
     Indication: CONTRACEPTION
     Dosage: 1 ROD/ EVERY 3 YEARS
     Route: 059
     Dates: start: 20130923

REACTIONS (3)
  - Expired product administered [Unknown]
  - Amenorrhoea [Unknown]
  - Haemorrhage urinary tract [Unknown]

NARRATIVE: CASE EVENT DATE: 201309
